FAERS Safety Report 24726325 (Version 2)
Quarter: 2025Q1

REPORT INFORMATION
  Report Type: Spontaneous
  Country: US (occurrence: US)
  Receive Date: 20241212
  Receipt Date: 20250102
  Transmission Date: 20250409
  Serious: No
  Sender: MYLAN
  Company Number: US-MYLANLABS-2024M1109295

PATIENT
  Age: 66 Year
  Sex: Female
  Weight: 72.12 kg

DRUGS (6)
  1. LEVOTHYROXINE SODIUM [Suspect]
     Active Substance: LEVOTHYROXINE SODIUM
     Indication: Hypothyroidism
     Dosage: 125 MICROGRAM, QD (BEFORE EATING BREAKFAST OR BEFORE BEDTIME)
     Route: 065
     Dates: start: 2011
  2. LEVOTHYROXINE SODIUM [Suspect]
     Active Substance: LEVOTHYROXINE SODIUM
     Route: 065
  3. LEVOTHYROXINE SODIUM [Suspect]
     Active Substance: LEVOTHYROXINE SODIUM
     Route: 065
  4. LEVOTHYROXINE SODIUM [Suspect]
     Active Substance: LEVOTHYROXINE SODIUM
     Route: 065
  5. XANAX [Concomitant]
     Active Substance: ALPRAZOLAM
     Indication: Sleep disorder
     Route: 065
  6. Herbal laxative [Concomitant]
     Indication: Constipation
     Route: 065

REACTIONS (2)
  - Headache [Recovering/Resolving]
  - Product dosage form issue [Unknown]

NARRATIVE: CASE EVENT DATE: 20241101
